FAERS Safety Report 25019804 (Version 1)
Quarter: 2025Q1

REPORT INFORMATION
  Report Type: Spontaneous
  Country: US (occurrence: US)
  Receive Date: 20250227
  Receipt Date: 20250227
  Transmission Date: 20250409
  Serious: No
  Sender: UCB
  Company Number: US-UCBSA-2024032193

PATIENT
  Sex: Male

DRUGS (22)
  1. LEVETIRACETAM [Suspect]
     Active Substance: LEVETIRACETAM
     Indication: Seizure
  2. LEVETIRACETAM [Suspect]
     Active Substance: LEVETIRACETAM
     Indication: Hypoxic-ischaemic encephalopathy
  3. LEVETIRACETAM [Suspect]
     Active Substance: LEVETIRACETAM
     Indication: Off label use
  4. MIDAZOLAM [Concomitant]
     Active Substance: MIDAZOLAM
     Indication: Seizure
  5. MIDAZOLAM [Concomitant]
     Active Substance: MIDAZOLAM
     Indication: Hypoxic-ischaemic encephalopathy
  6. FOSPHENYTOIN [Concomitant]
     Active Substance: FOSPHENYTOIN
     Indication: Seizure
  7. FOSPHENYTOIN [Concomitant]
     Active Substance: FOSPHENYTOIN
     Indication: Hypoxic-ischaemic encephalopathy
  8. EPINEPHRINE [Concomitant]
     Active Substance: EPINEPHRINE
     Indication: Hypoxic-ischaemic encephalopathy
     Route: 007
  9. EPINEPHRINE [Concomitant]
     Active Substance: EPINEPHRINE
     Indication: Seizure
  10. EPINEPHRINE [Concomitant]
     Active Substance: EPINEPHRINE
     Indication: Hypoxic-ischaemic encephalopathy
     Route: 042
  11. EPINEPHRINE [Concomitant]
     Active Substance: EPINEPHRINE
     Indication: Seizure
     Route: 042
  12. SODIUM CHLORIDE [Concomitant]
     Active Substance: SODIUM CHLORIDE
     Indication: Product used for unknown indication
  13. CALCIUM GLUCONATE [Concomitant]
     Active Substance: CALCIUM GLUCONATE
     Indication: Product used for unknown indication
  14. HYDROCORTISONE [Concomitant]
     Active Substance: HYDROCORTISONE
     Indication: Hypoxic-ischaemic encephalopathy
  15. HYDROCORTISONE [Concomitant]
     Active Substance: HYDROCORTISONE
     Indication: Seizure
  16. SODIUM BICARBONATE [Concomitant]
     Active Substance: SODIUM BICARBONATE
     Indication: Acidosis
     Dosage: 2 MILLIEQUIVALENT PER KILOGRAM, 2X/DAY (BID)
  17. INSULIN NOS [Concomitant]
     Active Substance: INSULIN NOS
     Indication: Hyperglycaemia
  18. PHENOBARBITAL [Concomitant]
     Active Substance: PHENOBARBITAL
     Indication: Hypoxic-ischaemic encephalopathy
  19. PHENOBARBITAL [Concomitant]
     Active Substance: PHENOBARBITAL
     Indication: Seizure
  20. CALCIUM [Concomitant]
     Active Substance: CALCIUM
     Indication: Calcium ionised decreased
  21. PHENYLEPHRINE [Concomitant]
     Active Substance: PHENYLEPHRINE
     Indication: Hypoxic-ischaemic encephalopathy
  22. PHENYLEPHRINE [Concomitant]
     Active Substance: PHENYLEPHRINE
     Indication: Seizure

REACTIONS (1)
  - No adverse event [Unknown]
